FAERS Safety Report 21550070 (Version 1)
Quarter: 2022Q4

REPORT INFORMATION
  Report Type: Spontaneous
  Country: DE (occurrence: DE)
  Receive Date: 20221103
  Receipt Date: 20221103
  Transmission Date: 20230113
  Serious: Yes (Hospitalization, Other)
  Sender: FDA-Public Use
  Company Number: DE-AMGEN-DEUSP2022183941

PATIENT
  Age: 83 Year
  Sex: Female

DRUGS (13)
  1. PROLIA [Suspect]
     Active Substance: DENOSUMAB
     Indication: Osteoporosis
     Dosage: 60 MILLIGRAM, Q6MO
     Route: 065
     Dates: start: 20211216
  2. PROLIA [Suspect]
     Active Substance: DENOSUMAB
     Dosage: UNK
     Route: 065
     Dates: start: 20220617
  3. NALOXONE HYDROCHLORIDE\OXYCODONE HYDROCHLORIDE [Concomitant]
     Active Substance: NALOXONE HYDROCHLORIDE\OXYCODONE HYDROCHLORIDE
     Dosage: 5 ML/2.5 MG, QID
  4. LACTULOSE [Concomitant]
     Active Substance: LACTULOSE
     Dosage: UNK, BID
  5. SODIUM PICOSULFATE [Concomitant]
     Active Substance: SODIUM PICOSULFATE
     Dosage: UNK, BID
  6. RAMIPRIL [Concomitant]
     Active Substance: RAMIPRIL
     Dosage: 5 MILLIGRAM, QD
  7. AMLODIPINE [Concomitant]
     Active Substance: AMLODIPINE BESYLATE
     Dosage: 5 MILLIGRAM, QD
  8. Vigantol [Concomitant]
     Dosage: UNK, QD
  9. METAMIZOLE [Concomitant]
     Active Substance: METAMIZOLE
     Dosage: UNK UNK, AS NECESSARY
  10. CALMVALERA HEVERT [Concomitant]
     Dosage: UNK UNK, AS NECESSARY
  11. HERBALS [Concomitant]
     Active Substance: HERBALS
     Dosage: UNK UNK, AS NECESSARY
  12. MAGNESIUM [Concomitant]
     Active Substance: MAGNESIUM
     Dosage: UNK UNK, AS NECESSARY
  13. CALCIUM [Concomitant]
     Active Substance: CALCIUM
     Dosage: UNK UNK, AS NECESSARY

REACTIONS (15)
  - Spinal compression fracture [Unknown]
  - Hypoaesthesia [Unknown]
  - Bladder prolapse [Unknown]
  - Rectal prolapse [Unknown]
  - Neuralgia [Not Recovered/Not Resolved]
  - Eczema asteatotic [Unknown]
  - Spinal pain [Unknown]
  - Jaw disorder [Unknown]
  - Tooth dislocation [Unknown]
  - Ear inflammation [Unknown]
  - Stomatitis [Recovered/Resolved]
  - Tremor [Unknown]
  - Muscle spasms [Unknown]
  - Fall [Unknown]
  - Constipation [Unknown]

NARRATIVE: CASE EVENT DATE: 20220101
